FAERS Safety Report 9677698 (Version 2)
Quarter: 2013Q4

REPORT INFORMATION
  Report Type: Spontaneous
  Country: US (occurrence: US)
  Receive Date: 20131108
  Receipt Date: 20131202
  Transmission Date: 20140711
  Serious: Yes (Other)
  Sender: FDA-Public Use
  Company Number: US-JNJFOC-20131100911

PATIENT
  Sex: 0

DRUGS (2)
  1. TOPAMAX [Suspect]
     Indication: CONVULSION
     Route: 048
  2. GENERIC TOPAMAX [Suspect]
     Indication: CONVULSION
     Route: 048

REACTIONS (3)
  - Convulsion [Unknown]
  - Drug dose omission [Unknown]
  - Therapeutic response unexpected with drug substitution [Unknown]
